FAERS Safety Report 5718346-3 (Version None)
Quarter: 2008Q2

REPORT INFORMATION
  Report Type: 
  Country: None (occurrence: None)
  Receive Date: 20080425
  Receipt Date: 20070725
  Transmission Date: 20081010
  Serious: No
  Sender: FDA-Public Use
  Company Number: A0640944A

PATIENT
  Age: 12 Year
  Sex: Female

DRUGS (1)
  1. DEXEDRINE [Suspect]
     Indication: ATTENTION DEFICIT/HYPERACTIVITY DISORDER
     Dosage: 5MG PER DAY
     Route: 048
     Dates: start: 19980101, end: 20070301

REACTIONS (4)
  - BODY HEIGHT DECREASED [None]
  - DELAYED PUBERTY [None]
  - GROWTH RETARDATION [None]
  - WEIGHT DECREASED [None]
